FAERS Safety Report 6689051-4 (Version None)
Quarter: 2010Q2

REPORT INFORMATION
  Report Type: 
  Country: None (occurrence: None)
  Receive Date: 20100420
  Receipt Date: 20100416
  Transmission Date: 20101027
  Serious: Yes (Other)
  Sender: FDA-Public Use
  Company Number: CH-ROXANE LABORATORIES, INC.-2010-RO-00434RO

PATIENT
  Age: 72 Year

DRUGS (3)
  1. MORPHINE [Suspect]
     Indication: PROCEDURAL PAIN
  2. MORPHINE [Suspect]
  3. MORPHINE [Suspect]
     Route: 037

REACTIONS (3)
  - DEVICE MALFUNCTION [None]
  - DRUG INEFFECTIVE [None]
  - SEDATION [None]
